FAERS Safety Report 9818892 (Version 1)
Quarter: 2014Q1

REPORT INFORMATION
  Report Type: Spontaneous
  Country: US (occurrence: None)
  Receive Date: 20140114
  Receipt Date: 20140114
  Transmission Date: 20141002
  Serious: Yes (Other)
  Sender: FDA-Public Use
  Company Number: None

PATIENT
  Age: 65 Year
  Sex: Female
  Weight: 49.9 kg

DRUGS (15)
  1. TRADJENTA [Suspect]
     Indication: DIABETES MELLITUS
     Dosage: 1 TAB  QD  ORAL
     Route: 048
  2. AMLODIPINE [Concomitant]
  3. ASA [Concomitant]
  4. ATORVASTATIN [Concomitant]
  5. BENAZEPRIL [Concomitant]
  6. CALTIRIOL [Concomitant]
  7. CINACALCET [Concomitant]
  8. CYCLOSPORINE [Concomitant]
  9. GLIPIZIDE [Concomitant]
  10. LEFLUNOMIDE [Concomitant]
  11. MAGNESIUM OXIDE [Concomitant]
  12. PRILOSEC [Concomitant]
  13. PREDNISONE [Concomitant]
  14. VITAMIN D3 [Concomitant]
  15. ZETIA [Concomitant]

REACTIONS (3)
  - Myalgia [None]
  - Muscular weakness [None]
  - Dysstasia [None]
